FAERS Safety Report 10057918 (Version 1)
Quarter: 2014Q2

REPORT INFORMATION
  Report Type: Spontaneous
  Country: US (occurrence: None)
  Receive Date: 20140403
  Receipt Date: 20140403
  Transmission Date: 20141212
  Serious: Yes (Other)
  Sender: FDA-Public Use
  Company Number: None

PATIENT
  Age: 70 Year
  Sex: Male
  Weight: 52.7 kg

DRUGS (1)
  1. CAPECITABINE [Suspect]
     Indication: NEOPLASM MALIGNANT
     Route: 048
     Dates: start: 20140213, end: 20140321

REACTIONS (3)
  - Mucosal inflammation [None]
  - Pancytopenia [None]
  - Palmar-plantar erythrodysaesthesia syndrome [None]
